FAERS Safety Report 24296971 (Version 2)
Quarter: 2024Q3

REPORT INFORMATION
  Report Type: Report from Study
  Country: US (occurrence: US)
  Receive Date: 20240909
  Receipt Date: 20240913
  Transmission Date: 20241017
  Serious: Yes (Other)
  Sender: ABBVIE
  Company Number: US-ABBVIE-5907867

PATIENT
  Sex: Male
  Weight: 78 kg

DRUGS (8)
  1. SKYRIZI [Suspect]
     Active Substance: RISANKIZUMAB-RZAA
     Indication: Crohn^s disease
     Dosage: LAST ADMIN DATE 2023, FORM STRENGTH 360MG/2.4ML
     Route: 058
     Dates: start: 20230721
  2. SKYRIZI [Suspect]
     Active Substance: RISANKIZUMAB-RZAA
     Dosage: FORM STRENGTH 360MG/2.4ML
     Route: 058
     Dates: start: 20231103
  3. TESTOSTERONE CYPIONATE [Concomitant]
     Active Substance: TESTOSTERONE CYPIONATE
     Indication: Product used for unknown indication
     Dosage: FORM STRENGTH: 0.5 MG
  4. Cyanocobalamin B12 [Concomitant]
     Indication: Bone disorder
     Dosage: FORM STRENGTH: 1 MG
  5. VITAMIN D3 [Concomitant]
     Active Substance: CHOLECALCIFEROL
     Indication: Product used for unknown indication
  6. SKYRIZI [Suspect]
     Active Substance: RISANKIZUMAB-RZAA
     Indication: Crohn^s disease
     Dosage: WEEK ZERO
     Route: 042
     Dates: start: 20230721, end: 20230721
  7. SKYRIZI [Suspect]
     Active Substance: RISANKIZUMAB-RZAA
     Indication: Crohn^s disease
     Dosage: WEEK FOUR?DRUG START AND END DATE-2023
     Route: 042
  8. SKYRIZI [Suspect]
     Active Substance: RISANKIZUMAB-RZAA
     Indication: Crohn^s disease
     Dosage: WEEK EIGHT?DRUG START AND END DATE- 2023
     Route: 042

REACTIONS (6)
  - Pain in extremity [Recovered/Resolved]
  - Paraesthesia [Recovering/Resolving]
  - Synovial cyst [Unknown]
  - Injection site papule [Recovered/Resolved]
  - Gait disturbance [Recovered/Resolved]
  - Radiculopathy [Unknown]

NARRATIVE: CASE EVENT DATE: 20240101
